FAERS Safety Report 10262045 (Version 2)
Quarter: 2014Q2

REPORT INFORMATION
  Report Type: Report from Study
  Country: US (occurrence: US)
  Receive Date: 20140626
  Receipt Date: 20140627
  Transmission Date: 20141212
  Serious: Yes (Other)
  Sender: FDA-Public Use
  Company Number: US-ABBVIE-14P-163-1248714-00

PATIENT
  Sex: Female
  Weight: 90.8 kg

DRUGS (15)
  1. HUMIRA [Suspect]
     Indication: RHEUMATOID ARTHRITIS
     Dates: start: 2004, end: 2011
  2. HUMIRA [Suspect]
     Dates: start: 201312
  3. METHOTREXATE [Suspect]
     Indication: RHEUMATOID ARTHRITIS
     Route: 048
     Dates: start: 2001, end: 2003
  4. METHOTREXATE [Suspect]
     Route: 050
     Dates: start: 2003, end: 2005
  5. METHOTREXATE [Suspect]
     Route: 048
     Dates: start: 2005, end: 2011
  6. PLAQUENIL [Concomitant]
     Indication: RHEUMATOID ARTHRITIS
  7. LAMICTAL [Concomitant]
     Indication: BIPOLAR DISORDER
  8. WELLBUTRIN [Concomitant]
     Indication: BIPOLAR DISORDER
  9. SEROQUEL [Concomitant]
     Indication: BIPOLAR DISORDER
  10. NEXIUM [Concomitant]
     Indication: GASTRIC ULCER
     Dates: start: 2003
  11. PROVIGIL [Concomitant]
     Indication: FATIGUE
  12. FOSAMAX [Concomitant]
     Indication: OSTEOPOROSIS
  13. LEVOTHYROXINE [Concomitant]
     Indication: HYPOTHYROIDISM
  14. CARAFATE [Concomitant]
     Indication: GASTRIC ULCER
  15. VICOPROFEN [Concomitant]
     Indication: RHEUMATOID ARTHRITIS

REACTIONS (11)
  - Bile duct stenosis [Recovered/Resolved]
  - Alanine aminotransferase increased [Recovered/Resolved]
  - Injection site pain [Not Recovered/Not Resolved]
  - Hepatic steatosis [Recovering/Resolving]
  - Vitamin B12 deficiency [Recovered/Resolved]
  - Panic attack [Recovering/Resolving]
  - Arthritis [Recovered/Resolved]
  - Arthritis [Recovered/Resolved]
  - Arthritis [Recovered/Resolved]
  - Hepatic steatosis [Not Recovered/Not Resolved]
  - Alanine aminotransferase increased [Recovered/Resolved]
